FAERS Safety Report 5953310-0 (Version None)
Quarter: 2008Q4

REPORT INFORMATION
  Report Type: 
  Country: None (occurrence: None)
  Receive Date: 20081114
  Receipt Date: 20081110
  Transmission Date: 20090506
  Serious: Yes (Hospitalization, Other)
  Sender: FDA-Public Use
  Company Number: FR-BRISTOL-MYERS SQUIBB COMPANY-14402069

PATIENT
  Age: 57 Year
  Sex: Male

DRUGS (3)
  1. CETUXIMAB [Suspect]
     Indication: BILE DUCT CANCER
     Dosage: MOST RECENT INFUSION ON: 09-SEP-2008 (820 MG)
     Route: 042
     Dates: start: 20080424
  2. GEMCITABINE HCL [Suspect]
     Indication: BILE DUCT CANCER
     Dosage: 1640 MG(1000 MG/M2 1 IN 2 W). MOST RECENT INFUSION ON: 09-SEP-2008
     Route: 042
     Dates: start: 20080424
  3. OXALIPLATIN [Suspect]
     Indication: BILE DUCT CANCER
     Dosage: 139 MG (100 MG/M2 1 IN 2 W). MOST RECENT INFUSION ON: 10-SEP-2008
     Route: 042
     Dates: start: 20080424

REACTIONS (1)
  - NEUTROPENIA [None]
